FAERS Safety Report 7439209-1 (Version None)
Quarter: 2011Q2

REPORT INFORMATION
  Report Type: 
  Country: None (occurrence: None)
  Receive Date: 20110427
  Receipt Date: 20110415
  Transmission Date: 20111010
  Serious: Yes (Hospitalization)
  Sender: FDA-Public Use
  Company Number: US-ELI_LILLY_AND_COMPANY-US201101006364

PATIENT
  Sex: Female

DRUGS (10)
  1. ASCORBIC ACID [Concomitant]
  2. FISH OIL [Concomitant]
  3. VITAMIN B-12 [Concomitant]
  4. NEXIUM [Concomitant]
  5. FORTEO [Suspect]
     Indication: OSTEOPOROSIS
     Dosage: 20 UG, QD
  6. THYROID TAB [Concomitant]
  7. VITAMIN D [Concomitant]
  8. CALTRATE [Concomitant]
  9. VITAMIN B6 [Concomitant]
  10. FOLIC ACID [Concomitant]

REACTIONS (6)
  - ARTHRALGIA [None]
  - FATIGUE [None]
  - DYSPNOEA [None]
  - BLOOD DISORDER [None]
  - LIMB DISCOMFORT [None]
  - TENDERNESS [None]
